FAERS Safety Report 10069147 (Version 2)
Quarter: 2015Q2

REPORT INFORMATION
  Report Type: Spontaneous
  Country: IN (occurrence: IN)
  Receive Date: 20140409
  Receipt Date: 20150601
  Transmission Date: 20150821
  Serious: Yes (Hospitalization)
  Sender: FDA-Public Use
  Company Number: PHHY2014IN040852

PATIENT
  Age: 58 Year
  Sex: Female

DRUGS (1)
  1. VALACICLOVIR [Suspect]
     Active Substance: VALACYCLOVIR HYDROCHLORIDE
     Indication: HERPES VIRUS INFECTION
     Dosage: 500 MG, QD
     Route: 065

REACTIONS (8)
  - Neurotoxicity [Recovering/Resolving]
  - Depressed level of consciousness [Recovered/Resolved]
  - Somnolence [Recovering/Resolving]
  - Confusional state [Recovering/Resolving]
  - Restlessness [Recovering/Resolving]
  - Speech disorder [Recovering/Resolving]
  - Irritability [Recovering/Resolving]
  - Disorientation [Recovering/Resolving]
